FAERS Safety Report 18436713 (Version 18)
Quarter: 2024Q3

REPORT INFORMATION
  Report Type: Report from Study
  Country: US (occurrence: US)
  Receive Date: 20201028
  Receipt Date: 20240820
  Transmission Date: 20241017
  Serious: Yes (Hospitalization, Other)
  Sender: TAKEDA
  Company Number: US-SHIRE-US202012013

PATIENT
  Sex: Female

DRUGS (4)
  1. HUMAN IMMUNOGLOBULIN G\HYALURONIDASE RECOMBINANT HUMAN [Suspect]
     Active Substance: HUMAN IMMUNOGLOBULIN G\HYALURONIDASE (HUMAN RECOMBINANT)
     Indication: Immunodeficiency common variable
     Dosage: UNK UNK, Q3WEEKS
     Route: 065
  2. GAMMAGARD LIQUID [Suspect]
     Active Substance: HUMAN IMMUNOGLOBULIN G
     Indication: Primary immunodeficiency syndrome
     Dosage: UNK UNK, Q2WEEKS
     Route: 042
  3. GAMMAGARD LIQUID [Suspect]
     Active Substance: HUMAN IMMUNOGLOBULIN G
     Indication: Immunodeficiency common variable
     Dosage: 100 GRAM
     Route: 042
  4. GAMMAGARD LIQUID [Suspect]
     Active Substance: HUMAN IMMUNOGLOBULIN G
     Indication: Myasthenia gravis
     Dosage: UNK
     Route: 042

REACTIONS (53)
  - Nephrolithiasis [Unknown]
  - Myasthenia gravis [Unknown]
  - Clostridium difficile infection [Unknown]
  - Leukaemia [Unknown]
  - Urosepsis [Unknown]
  - Gait disturbance [Unknown]
  - Systemic lupus erythematosus [Unknown]
  - Breast cancer [Unknown]
  - Pneumonia [Recovering/Resolving]
  - Cataract [Unknown]
  - Sinus disorder [Unknown]
  - Sinusitis [Not Recovered/Not Resolved]
  - Obstruction [Unknown]
  - Eye pruritus [Unknown]
  - Infusion site vesicles [Recovered/Resolved]
  - Urinary tract infection [Unknown]
  - Vasculitis [Unknown]
  - Ear pruritus [Unknown]
  - Oesophageal discomfort [Unknown]
  - Infusion site pruritus [Unknown]
  - Infusion site erythema [Unknown]
  - Swelling [Unknown]
  - Abdominal pain upper [Unknown]
  - Asthenia [Unknown]
  - Illness [Unknown]
  - Red blood cell abnormality [Unknown]
  - Neutrophil count decreased [Unknown]
  - Osteoma [Unknown]
  - Red blood cell sedimentation rate increased [Unknown]
  - Subcutaneous drug absorption impaired [Unknown]
  - Calcinosis [Unknown]
  - Breast disorder [Unknown]
  - Dyspnoea exertional [Unknown]
  - Dyspnoea [Unknown]
  - Night sweats [Unknown]
  - Insomnia [Unknown]
  - Pruritus [Unknown]
  - Myalgia [Unknown]
  - Infection [Unknown]
  - Upper respiratory tract infection [Unknown]
  - Dermatitis contact [Recovered/Resolved]
  - Exercise tolerance decreased [Unknown]
  - Musculoskeletal discomfort [Unknown]
  - Bronchitis [Unknown]
  - Dyskinesia [Unknown]
  - Device issue [Unknown]
  - Inability to afford medication [Unknown]
  - Joint swelling [Unknown]
  - Pain [Unknown]
  - Hyperhidrosis [Unknown]
  - Dyspepsia [Unknown]
  - Fatigue [Unknown]
  - Arthralgia [Unknown]
